FAERS Safety Report 9849753 (Version 2)
Quarter: 2014Q1

REPORT INFORMATION
  Report Type: Spontaneous
  Country: US (occurrence: None)
  Receive Date: 20140124
  Receipt Date: 20140206
  Transmission Date: 20141002
  Serious: Yes (Death, Other)
  Sender: FDA-Public Use
  Company Number: 2120287

PATIENT
  Age: 81 Year
  Sex: Male
  Weight: 92.5 kg

DRUGS (2)
  1. LEVOPHED [Suspect]
     Indication: SEPSIS
     Dosage: 8 MG/250 ML, CONTINUOUS, UNKNOWN, INTRAVENOUS DRIP, 5 DAYS
     Route: 041
     Dates: start: 20131223, end: 20131227
  2. VASOPRESSIN [Concomitant]

REACTIONS (4)
  - Neutropenia [None]
  - Peripheral ischaemia [None]
  - Thrombocytopenia [None]
  - Disseminated intravascular coagulation [None]
